FAERS Safety Report 21526400 (Version 1)
Quarter: 2022Q4

REPORT INFORMATION
  Report Type: Spontaneous
  Country: US (occurrence: US)
  Receive Date: 20221031
  Receipt Date: 20221031
  Transmission Date: 20230112
  Serious: No
  Sender: FDA-Public Use
  Company Number: US-UCBSA-2022016075

PATIENT
  Sex: Female

DRUGS (1)
  1. VIMPAT [Suspect]
     Active Substance: LACOSAMIDE
     Indication: Seizure
     Dosage: 150MG 2 TABLETS IN MORNING, 3 TABLETS IN EVENING
     Route: 048

REACTIONS (2)
  - Off label use [Unknown]
  - Insurance issue [Unknown]
